FAERS Safety Report 25334454 (Version 1)
Quarter: 2025Q2

REPORT INFORMATION
  Report Type: Spontaneous
  Country: US (occurrence: US)
  Receive Date: 20250520
  Receipt Date: 20250520
  Transmission Date: 20250716
  Serious: No
  Sender: AZURITY PHARMACEUTICALS
  Company Number: US-AZURITY PHARMACEUTICALS, INC.-AZR202502-000647

PATIENT
  Sex: Male
  Weight: 72.562 kg

DRUGS (1)
  1. TESTOSTERONE CYPIONATE [Suspect]
     Active Substance: TESTOSTERONE CYPIONATE
     Indication: Hormone replacement therapy
     Dosage: 1 MILLILITER, WEEKLY
     Route: 065

REACTIONS (4)
  - Product dose omission issue [Unknown]
  - Product use complaint [Unknown]
  - Product gel formation [Unknown]
  - Liquid product physical issue [Unknown]
